FAERS Safety Report 9885081 (Version 2)
Quarter: 2014Q2

REPORT INFORMATION
  Report Type: Spontaneous
  Country: US (occurrence: US)
  Receive Date: 20140210
  Receipt Date: 20140613
  Transmission Date: 20141212
  Serious: Yes (Hospitalization, Other)
  Sender: FDA-Public Use
  Company Number: US-009507513-1402USA003468

PATIENT
  Sex: Female

DRUGS (1)
  1. NUVARING [Suspect]
     Indication: PRODUCT USED FOR UNKNOWN INDICATION
     Dosage: 1 RING FOR 3 WEEKS, THEN REMOVE AND REPLACE IN 1 WEEK
     Route: 067
     Dates: end: 201205

REACTIONS (13)
  - Intracranial venous sinus thrombosis [Unknown]
  - Encephalopathy [Unknown]
  - Cerebral infarction [Unknown]
  - Metastatic neoplasm [Unknown]
  - Central nervous system lesion [Unknown]
  - Pulmonary mass [Unknown]
  - Angiopathy [Unknown]
  - Hypercoagulation [Unknown]
  - Intracranial venous sinus thrombosis [Unknown]
  - Hypercoagulation [Unknown]
  - Road traffic accident [Unknown]
  - Neck pain [Unknown]
  - Sinusitis [Recovered/Resolved]
